FAERS Safety Report 8206257-3 (Version None)
Quarter: 2012Q1

REPORT INFORMATION
  Report Type: 
  Country: None (occurrence: None)
  Receive Date: 20120313
  Receipt Date: 20120310
  Transmission Date: 20120608
  Serious: Yes (Death, Other)
  Sender: FDA-Public Use
  Company Number: PHHY2012DO021222

PATIENT
  Age: 76 Year
  Sex: Female

DRUGS (1)
  1. ZOLEDRONOC ACID [Suspect]
     Indication: METASTASES TO BONE
     Dosage: 5 MG, UNK
     Route: 042
     Dates: start: 20091223

REACTIONS (3)
  - UPPER LIMB FRACTURE [None]
  - METASTATIC LYMPHOMA [None]
  - DEATH [None]
